FAERS Safety Report 7003687-2 (Version None)
Quarter: 2010Q3

REPORT INFORMATION
  Report Type: 
  Country: None (occurrence: None)
  Receive Date: 20100920
  Receipt Date: 20091130
  Transmission Date: 20110219
  Serious: No
  Sender: FDA-Public Use
  Company Number: US-WYE-H12425509

PATIENT
  Sex: Female
  Weight: 59.93 kg

DRUGS (7)
  1. PRISTIQ [Suspect]
     Route: 048
     Dates: start: 20090101, end: 20091016
  2. TOPROL-XL [Concomitant]
  3. TYLENOL W/ CODEINE NO. 3 [Concomitant]
  4. ACETYLSALICYLIC ACID [Concomitant]
  5. POTASSIUM [Concomitant]
  6. HYDROCHLOROTHIAZIDE [Concomitant]
  7. LEVOTHYROXINE SODIUM [Concomitant]

REACTIONS (4)
  - BLOOD CHOLESTEROL INCREASED [None]
  - CONDITION AGGRAVATED [None]
  - HYPERTENSION [None]
  - LOW DENSITY LIPOPROTEIN INCREASED [None]
